FAERS Safety Report 8371150-2 (Version None)
Quarter: 2012Q2

REPORT INFORMATION
  Report Type: 
  Country: None (occurrence: None)
  Receive Date: 20120518
  Receipt Date: 20120509
  Transmission Date: 20120825
  Serious: Yes (Other)
  Sender: FDA-Public Use
  Company Number: US-ASTRAZENECA-2012SE30126

PATIENT
  Age: 48 Year
  Sex: Female

DRUGS (2)
  1. NEXIUM [Concomitant]
  2. PRILOSEC [Suspect]
     Route: 048

REACTIONS (2)
  - INTENTIONAL DRUG MISUSE [None]
  - GASTRIC HAEMORRHAGE [None]
